FAERS Safety Report 9065599 (Version 1)
Quarter: 2013Q1

REPORT INFORMATION
  Report Type: Report from Study
  Country: US (occurrence: US)
  Receive Date: 20130131
  Receipt Date: 20130131
  Transmission Date: 20140127
  Serious: No
  Sender: FDA-Public Use
  Company Number: US-ABBOTT-12P-163-1023322-00

PATIENT
  Age: 48 None
  Sex: Female
  Weight: 48.12 kg

DRUGS (6)
  1. HUMIRA [Suspect]
     Indication: COLITIS ULCERATIVE
     Dates: start: 201210
  2. HUMIRA [Suspect]
     Indication: CROHN^S DISEASE
  3. 6 MP [Suspect]
     Indication: CROHN^S DISEASE
     Dates: start: 20121217
  4. 6 MP [Suspect]
     Indication: COLITIS ULCERATIVE
  5. ASACOL [Concomitant]
     Indication: CROHN^S DISEASE
  6. ASACOL [Concomitant]
     Indication: COLITIS ULCERATIVE

REACTIONS (4)
  - Device malfunction [Unknown]
  - Abdominal pain [Not Recovered/Not Resolved]
  - Abdominal pain upper [Not Recovered/Not Resolved]
  - Incorrect dose administered [Unknown]
